FAERS Safety Report 9790414 (Version 2)
Quarter: 2013Q4

REPORT INFORMATION
  Report Type: Spontaneous
  Country: JP (occurrence: JP)
  Receive Date: 20131231
  Receipt Date: 20131231
  Transmission Date: 20140711
  Serious: Yes (Death, Other)
  Sender: FDA-Public Use
  Company Number: JP-MALLINCKRODT-T201301835

PATIENT
  Age: 52 Year
  Sex: Male

DRUGS (40)
  1. METHADONE [Suspect]
     Indication: CANCER PAIN
     Dosage: 10 MG, (30 MG DAILY DOSE)
     Route: 048
     Dates: start: 20130415, end: 20130418
  2. METHADONE [Suspect]
     Dosage: 10 MG, (20 MG DAILY DOSE)
     Route: 048
     Dates: start: 20130419, end: 20130506
  3. FIRSTCIN [Concomitant]
     Dosage: 1000 MG, UNK
     Route: 042
     Dates: end: 20130419
  4. SOLDEM 3A [Concomitant]
     Dosage: 500 ML, UNK
     Route: 042
     Dates: end: 20130430
  5. MORPHINE HYDROCHLORIDE [Concomitant]
     Dosage: 336 MG, UNK
     Route: 042
     Dates: start: 20130414, end: 20130414
  6. ROPION [Concomitant]
     Dosage: UNK
     Route: 042
     Dates: start: 20130417
  7. CALONAL [Concomitant]
     Dosage: 1600 MG, UNK
     Route: 048
     Dates: end: 20130430
  8. CALONAL [Concomitant]
     Dosage: 400 MG, UNK
     Route: 048
  9. LYRICA [Concomitant]
     Dosage: 300 MG, UNK
     Route: 048
     Dates: end: 20130507
  10. LYRICA [Concomitant]
     Dosage: 150 MG, UNK
     Route: 048
  11. RIVOTRIL [Concomitant]
     Dosage: 1 MG, UNK
     Route: 048
     Dates: end: 20130430
  12. ESTAZOLAM [Concomitant]
     Dosage: 1 MG, UNK
     Route: 048
     Dates: end: 20130430
  13. ROHYPNOL [Concomitant]
     Dosage: 1 MG, UNK
     Route: 048
     Dates: end: 20130430
  14. CELECOX [Concomitant]
     Dosage: 400 MG, UNK
     Route: 048
     Dates: start: 20130430, end: 20130430
  15. CELECOX [Concomitant]
     Dosage: 200 MG, UNK
     Route: 048
     Dates: end: 20130430
  16. NEOPHAGEN C COMBINATION TABLET [Concomitant]
     Dosage: 3 DF, UNK
     Route: 048
     Dates: end: 20130430
  17. NEOPHAGEN C COMBINATION TABLET [Concomitant]
     Dosage: 1 DF, UNK
     Route: 048
     Dates: end: 20130430
  18. PARIET [Concomitant]
     Dosage: 10 MG, UNK
     Route: 048
     Dates: end: 20130430
  19. REMERON [Concomitant]
     Dosage: 45 MG, UNK
     Route: 048
     Dates: end: 20130430
  20. TS-1 [Concomitant]
     Dosage: 6 DF, UNK
     Route: 048
     Dates: end: 20130429
  21. ELSPRI [Concomitant]
     Dosage: 1200 MG, UNK
     Route: 048
     Dates: start: 20130422, end: 20130505
  22. MUCODYNE [Concomitant]
     Dosage: 1500 MG, UNK
     Route: 048
     Dates: start: 20130426, end: 20130430
  23. MYSLEE [Concomitant]
     Dosage: 5 MG, UNK
     Route: 048
     Dates: start: 20130505, end: 20130505
  24. PACIF [Concomitant]
     Dosage: 360 MG, UNK
     Route: 048
     Dates: end: 20130416
  25. VOLTAREN [Concomitant]
     Dosage: 50 MG, UNK
     Route: 054
     Dates: end: 20130506
  26. SOLDEM 1 [Concomitant]
     Dosage: 500 ML, UNK
     Route: 051
     Dates: start: 20130501, end: 20130510
  27. SOLULACT [Concomitant]
     Dosage: 500 ML, UNK
     Route: 051
     Dates: start: 20130501, end: 20130506
  28. BFLUID [Concomitant]
     Dosage: 1000 ML, UNK
     Route: 051
     Dates: start: 20130425, end: 20130430
  29. FINIBAX [Concomitant]
     Dosage: 750 MG, UNK
     Route: 051
     Dates: start: 20130423
  30. POPSCAINE [Concomitant]
     Dosage: 250 MG, UNK
     Route: 051
     Dates: start: 20130419, end: 20130419
  31. KETALAR [Concomitant]
     Dosage: 150 MG, UNK
     Route: 042
     Dates: end: 20130416
  32. KETALAR [Concomitant]
     Dosage: 105 MG, UNK
     Route: 042
     Dates: start: 20130416, end: 20130419
  33. KETALAR [Concomitant]
     Dosage: 75 MG, UNK
     Route: 042
     Dates: start: 20130419, end: 20130422
  34. LASIX [Concomitant]
     Dosage: 10 MG, UNK
     Route: 051
     Dates: start: 20130424, end: 20130424
  35. SOLU-MEDROL [Concomitant]
     Dosage: 500 MG, UNK
     Route: 051
     Dates: start: 20130430, end: 20130502
  36. ALTAT [Concomitant]
     Dosage: 75 MG, UNK
     Route: 051
     Dates: start: 20130502, end: 20130506
  37. PREDONINE [Concomitant]
     Dosage: 40 MG, UNK
     Route: 051
     Dates: start: 20130503
  38. MORPHINE HYDROCHLORIDE [Concomitant]
     Dosage: 144 MG, UNK
     Route: 042
     Dates: start: 20130415, end: 20130418
  39. MORPHINE HYDROCHLORIDE [Concomitant]
     Dosage: 96 MG, UNK
     Route: 042
     Dates: start: 20130419, end: 20130504
  40. MORPHINE HYDROCHLORIDE [Concomitant]
     Dosage: 240 MG, UNK
     Route: 042
     Dates: start: 20130506, end: 20130506

REACTIONS (4)
  - Colon cancer [Fatal]
  - Electrocardiogram QT prolonged [Recovered/Resolved]
  - Somnolence [Recovered/Resolved]
  - Pyrexia [Recovered/Resolved]
